FAERS Safety Report 9018038 (Version 1)
Quarter: 2013Q1

REPORT INFORMATION
  Report Type: Spontaneous
  Country: US (occurrence: US)
  Receive Date: 20130118
  Receipt Date: 20130118
  Transmission Date: 20140127
  Serious: Yes (Other)
  Sender: FDA-Public Use
  Company Number: US-MERCK-1210USA012636

PATIENT
  Age: 19 Year
  Sex: Male

DRUGS (1)
  1. SAPHRIS [Suspect]
     Indication: BIPOLAR DISORDER
     Dosage: 10 MG BLACK CHERRY FLAVOR, QD PM
     Route: 060
     Dates: start: 201210

REACTIONS (4)
  - Drug hypersensitivity [Recovered/Resolved]
  - Tongue disorder [Recovered/Resolved]
  - Dystonia [Recovered/Resolved]
  - Mood altered [Unknown]
